FAERS Safety Report 17483443 (Version 1)
Quarter: 2020Q1

REPORT INFORMATION
  Report Type: Spontaneous
  Country: US (occurrence: US)
  Receive Date: 20200218
  Receipt Date: 20200218
  Transmission Date: 20200409
  Serious: Yes (Hospitalization)
  Sender: FDA-Public Use
  Company Number: None

PATIENT
  Age: 68 Year
  Sex: Male
  Weight: 97 kg

DRUGS (1)
  1. ALECTINIB (ALECTINIB 150MG CAP,ORAL) [Suspect]
     Active Substance: ALECTINIB
     Indication: NON-SMALL CELL LUNG CANCER
     Route: 048
     Dates: start: 20190409, end: 20190421

REACTIONS (2)
  - Pericardial effusion [None]
  - Hyperhidrosis [None]

NARRATIVE: CASE EVENT DATE: 20190421
